FAERS Safety Report 4358710-0 (Version None)
Quarter: 2004Q2

REPORT INFORMATION
  Report Type: 
  Country: None (occurrence: None)
  Receive Date: 20040511
  Receipt Date: 20040427
  Transmission Date: 20050107
  Serious: No
  Sender: FDA-Public Use
  Company Number: FABR-10510

PATIENT
  Age: 44 Year
  Sex: Male
  Weight: 78.9259 kg

DRUGS (7)
  1. FABRAZYME [Suspect]
     Indication: FABRY'S DISEASE
     Dosage: 70 MG Q2WKS IV
     Route: 042
     Dates: start: 20031201
  2. ASPIRIN [Concomitant]
  3. FISH OIL [Concomitant]
  4. BETAPACE [Concomitant]
  5. CORAL CALCIUM [Concomitant]
  6. ACETAMINOPHEN [Concomitant]
  7. DIPHENHYDRAMINE HCL [Concomitant]

REACTIONS (10)
  - ABDOMINAL DISCOMFORT [None]
  - COUGH [None]
  - DIARRHOEA [None]
  - DIZZINESS [None]
  - DYSPNOEA [None]
  - FLUSHING [None]
  - INFUSION RELATED REACTION [None]
  - NAUSEA [None]
  - PHARYNX DISCOMFORT [None]
  - SOMNOLENCE [None]
